FAERS Safety Report 10097236 (Version 1)
Quarter: 2014Q2

REPORT INFORMATION
  Report Type: Report from Study
  Country: LB (occurrence: LB)
  Receive Date: 20140422
  Receipt Date: 20140422
  Transmission Date: 20141212
  Serious: Yes (Death, Hospitalization, Other)
  Sender: FDA-Public Use
  Company Number: PHHY2014LB048577

PATIENT
  Age: 84 Year
  Sex: Male

DRUGS (3)
  1. ACLASTA [Suspect]
     Route: 042
  2. CONCOR [Concomitant]
     Dosage: 1 DF, UNK
     Route: 048
  3. LASIX [Concomitant]
     Dosage: 40 MG, UNK
     Route: 048

REACTIONS (6)
  - Cardiac arrest [Fatal]
  - Aortic valve stenosis [Unknown]
  - Loss of consciousness [Unknown]
  - Heart rate decreased [Unknown]
  - General physical health deterioration [Unknown]
  - Blood pressure decreased [Unknown]
